FAERS Safety Report 5735507-8 (Version None)
Quarter: 2008Q2

REPORT INFORMATION
  Report Type: 
  Country: None (occurrence: None)
  Receive Date: 20080512
  Receipt Date: 20080506
  Transmission Date: 20081010
  Serious: Yes (Hospitalization, Disabling, Other)
  Sender: FDA-Public Use
  Company Number: FR-PFIZER INC-2008039343

PATIENT
  Age: 76 Year
  Sex: Male

DRUGS (9)
  1. XANAX [Suspect]
     Dosage: TEXT:1 DOSAGE FORM-FREQ:EVERY DAY
  2. IMOVANE [Suspect]
     Dosage: TEXT:1 TABLET-FREQ:EVERY DAY
     Route: 048
  3. SEROPRAM [Suspect]
  4. REQUIP [Interacting]
     Dosage: TEXT:1 DOSAGE FORM-FREQ:EVERY DAY
  5. SINEMET [Interacting]
     Dosage: TEXT:1 DOSAGE FORM-FREQ:EVERY DAY
  6. DOMPERIDONE [Concomitant]
  7. ZOCOR [Concomitant]
  8. FORLAX [Concomitant]
  9. NEXIUM [Concomitant]

REACTIONS (2)
  - DRUG INTERACTION [None]
  - FALL [None]
